FAERS Safety Report 7700174-0 (Version None)
Quarter: 2011Q3

REPORT INFORMATION
  Report Type: 
  Country: None (occurrence: None)
  Receive Date: 20110822
  Receipt Date: 20110816
  Transmission Date: 20111222
  Serious: No
  Sender: FDA-Public Use
  Company Number: US-PFIZER INC-2011189623

PATIENT
  Sex: Female

DRUGS (3)
  1. PROMETRIUM [Concomitant]
     Dosage: 20 MG, UNK
     Route: 048
  2. TOVIAZ [Suspect]
     Indication: URINARY INCONTINENCE
     Dosage: 8 MG, DAILY
     Route: 048
     Dates: start: 20101101
  3. SERTRALINE [Concomitant]
     Indication: DEPRESSION
     Dosage: 25 MG, UNK
     Route: 048

REACTIONS (1)
  - DRUG INEFFECTIVE [None]
